FAERS Safety Report 25340839 (Version 1)
Quarter: 2025Q2

REPORT INFORMATION
  Report Type: Report from Study
  Country: CA (occurrence: CA)
  Receive Date: 20250521
  Receipt Date: 20250521
  Transmission Date: 20250716
  Serious: No
  Sender: JOHNSON AND JOHNSON
  Company Number: CA-JNJFOC-20250516454

PATIENT
  Age: 50 Year
  Sex: Male

DRUGS (2)
  1. REMICADE [Suspect]
     Active Substance: INFLIXIMAB
     Indication: Crohn^s disease
     Dosage: EXPIRY DATE: MA-2027
     Route: 041
     Dates: start: 20130704
  2. REMICADE [Suspect]
     Active Substance: INFLIXIMAB
     Route: 041
     Dates: start: 20120926

REACTIONS (1)
  - High frequency ablation [Recovered/Resolved]

NARRATIVE: CASE EVENT DATE: 20250429
